FAERS Safety Report 18224952 (Version 6)
Quarter: 2021Q1

REPORT INFORMATION
  Report Type: Spontaneous
  Country: RU (occurrence: RU)
  Receive Date: 20200902
  Receipt Date: 20210106
  Transmission Date: 20210419
  Serious: Yes (Other)
  Sender: FDA-Public Use
  Company Number: RU-SA-2020SA230517

PATIENT

DRUGS (4)
  1. TOUJEO [Suspect]
     Active Substance: INSULIN GLARGINE
     Indication: TYPE 2 DIABETES MELLITUS
     Dosage: 23?24 IU, QD
     Route: 058
     Dates: start: 202008, end: 20201106
  2. INSULIN ASPART [Suspect]
     Active Substance: INSULIN ASPART
     Indication: TYPE 2 DIABETES MELLITUS
     Dosage: 8 IU(MORNING)+4 IU(NOON)+4 IU(EVENING), TID
     Route: 058
     Dates: start: 202008, end: 20201106
  3. TOUJEO [Suspect]
     Active Substance: INSULIN GLARGINE
     Dosage: 20?21 IU, QD
     Route: 058
     Dates: start: 20201106
  4. INSULIN ASPART [Suspect]
     Active Substance: INSULIN ASPART
     Dosage: 6 IU(MORNING)+4 IU(NOON)+4 IU(EVENING), TID
     Route: 058

REACTIONS (9)
  - Nervousness [Unknown]
  - Irritability [Unknown]
  - Blood glucose increased [Recovered/Resolved with Sequelae]
  - Urinary incontinence [Unknown]
  - Mental disorder [Unknown]
  - Hypoglycaemia [Recovered/Resolved]
  - Dementia Alzheimer^s type [Unknown]
  - Disease progression [Unknown]
  - Fall [Unknown]

NARRATIVE: CASE EVENT DATE: 2020
